FAERS Safety Report 25142409 (Version 1)
Quarter: 2025Q1

REPORT INFORMATION
  Report Type: Spontaneous
  Country: FR (occurrence: FR)
  Receive Date: 20250331
  Receipt Date: 20250331
  Transmission Date: 20250409
  Serious: Yes (Hospitalization)
  Sender: PFIZER
  Company Number: None

PATIENT
  Age: 74 Year
  Sex: Male
  Weight: 112 kg

DRUGS (1)
  1. VFEND [Suspect]
     Active Substance: VORICONAZOLE
     Indication: Bronchopulmonary aspergillosis
     Dosage: 100 MG, 2X/DAY
     Route: 048
     Dates: start: 20240312, end: 202412

REACTIONS (1)
  - Axonal neuropathy [Recovering/Resolving]

NARRATIVE: CASE EVENT DATE: 20240326
